FAERS Safety Report 7041753-6 (Version None)
Quarter: 2010Q4

REPORT INFORMATION
  Report Type: 
  Country: None (occurrence: None)
  Receive Date: 20101013
  Receipt Date: 20100519
  Transmission Date: 20110411
  Serious: No
  Sender: FDA-Public Use
  Company Number: US-ASTRAZENECA-2010SE22945

PATIENT
  Age: 78 Year
  Sex: Female
  Weight: 81.6 kg

DRUGS (4)
  1. SYMBICORT [Suspect]
     Indication: CHRONIC OBSTRUCTIVE PULMONARY DISEASE
     Dosage: 4.5 MCG DAILY
     Route: 055
     Dates: start: 20091201
  2. LITHIUM [Concomitant]
  3. NAVANE [Concomitant]
  4. RISPERDAL [Concomitant]

REACTIONS (2)
  - CHILLS [None]
  - FEELING COLD [None]
